FAERS Safety Report 7342861-2 (Version None)
Quarter: 2011Q1

REPORT INFORMATION
  Report Type: 
  Country: None (occurrence: None)
  Receive Date: 20110310
  Receipt Date: 20110228
  Transmission Date: 20110831
  Serious: Yes (Hospitalization, Disabling)
  Sender: FDA-Public Use
  Company Number: ES-BAYER-201021571GPV

PATIENT
  Sex: Male

DRUGS (38)
  1. LEUCOVORIN CALCIUM [Suspect]
     Dosage: 700 TOTAL DOSE
     Route: 042
     Dates: start: 20100209, end: 20100209
  2. ADIRO [Concomitant]
     Indication: HYPERTENSION
     Dosage: 100 MG, QD
     Dates: start: 20060101
  3. ONDANSETRON [Concomitant]
     Dosage: 80 MG, QD
     Dates: start: 20100224, end: 20100224
  4. PARAPRES [Concomitant]
     Indication: HYPERTENSION
     Dosage: 16 MG, QD
  5. OXALIPLATIN [Suspect]
     Dosage: 120 TOTAL DOSE
     Route: 042
     Dates: start: 20100224, end: 20100224
  6. LEUCOVORIN CALCIUM [Suspect]
     Dosage: 700 TOTAL DOSE
     Route: 042
     Dates: start: 20100310, end: 20100310
  7. 5-FU [Suspect]
     Dosage: 4300.00 TOAL DOSE EVERY TWO WEEKS FOR THREE DAYS
     Route: 041
     Dates: start: 20100118, end: 20100120
  8. INSULIN [INSULIN] [Concomitant]
     Dosage: 36 IU, QD
     Route: 058
     Dates: start: 20100201
  9. DEXAMETHASONE [Concomitant]
     Dosage: 20 MG, QD
     Dates: start: 20100310, end: 20100310
  10. BRIMONIDINE TARTRATE [Concomitant]
     Indication: RETINOPATHY
     Dosage: UNK
     Dates: start: 20100324, end: 20100404
  11. OXALIPLATIN [Suspect]
     Indication: COLORECTAL CANCER
     Dosage: 150
     Route: 042
     Dates: start: 20100118, end: 20100118
  12. OXALIPLATIN [Suspect]
     Dosage: 120 TOTAL DOSE
     Route: 042
     Dates: start: 20100310, end: 20100310
  13. LEUCOVORIN CALCIUM [Suspect]
     Indication: COLORECTAL CANCER
     Dosage: 700 TOTAL DOSE
     Route: 042
     Dates: start: 20100118, end: 20100118
  14. 5-FU [Suspect]
     Dosage: 700 TOTAL DOSE
     Route: 040
     Dates: start: 20100224, end: 20100224
  15. METFORMIN [Concomitant]
     Indication: DIABETES MELLITUS
     Dosage: 2550 MG, QD
     Route: 048
     Dates: start: 19950101
  16. SORAFENIB (RAF KINASE INHIBITOR) [Suspect]
     Dosage: UNK UNK, BID
     Route: 048
     Dates: start: 20100210, end: 20100223
  17. 5-FU [Suspect]
     Dosage: 700 TOTAL DOSE
     Route: 040
     Dates: start: 20100310, end: 20100310
  18. 5-FU [Suspect]
     Dosage: 4300.00 TOTAL DOSE
     Route: 042
     Dates: start: 20100310, end: 20100312
  19. INSULIN [INSULIN] [Concomitant]
     Indication: DIABETES MELLITUS
     Dosage: 32 IU, QD
     Dates: start: 20060101
  20. TETRAHYDROZOLINE HYDROCHLORIDE [Concomitant]
     Indication: RETINOPATHY
     Dosage: 0.50 MG, QD
     Route: 047
     Dates: start: 20100324
  21. AMILORIDE HYDROCHLORIDE [Concomitant]
  22. SORAFENIB (RAF KINASE INHIBITOR) [Suspect]
     Indication: COLORECTAL CANCER
     Dosage: 400 MG, BID
     Route: 048
     Dates: start: 20100118, end: 20100208
  23. SORAFENIB (RAF KINASE INHIBITOR) [Suspect]
     Dosage: 400 MG, QD
     Route: 048
     Dates: start: 20100209, end: 20100209
  24. LEUCOVORIN CALCIUM [Suspect]
     Dosage: 700 TOTAL DOSE
     Route: 042
     Dates: start: 20100224, end: 20100224
  25. 5-FU [Suspect]
     Dosage: 700TOTAL DOSR
     Route: 040
     Dates: start: 20100209, end: 20100209
  26. DEXAMETHASONE [Concomitant]
     Dosage: 20 MG, QD
     Dates: start: 20100209, end: 20100209
  27. 5-FU [Suspect]
     Dosage: 4300.00 TOTAL DOSE
     Route: 042
     Dates: start: 20100209, end: 20100211
  28. DEXAMETHASONE [Concomitant]
     Indication: PREMEDICATION
     Dosage: 20 MG, QD
     Dates: start: 20100118, end: 20100118
  29. DEXAMETHASONE [Concomitant]
     Dosage: 20 MG, QD
     Dates: start: 20100224, end: 20100224
  30. ONDANSETRON [Concomitant]
     Dosage: 80 MG, QD
     Dates: start: 20100209, end: 20100209
  31. 5-FU [Suspect]
     Indication: COLORECTAL CANCER
     Dosage: 700 TOTAL DOSE
     Route: 040
     Dates: start: 20100118, end: 20100118
  32. 5-FU [Suspect]
     Dosage: 4300.00 TOTAL DOSE
     Route: 042
     Dates: start: 20100224, end: 20100226
  33. OMEPRAZOLE [Concomitant]
     Indication: PROPHYLAXIS
     Dosage: 20 MG, QD
     Route: 048
     Dates: start: 20100101
  34. ONDANSETRON [Concomitant]
     Indication: PREMEDICATION
     Dosage: 80 MG, QD
     Dates: start: 20100118, end: 20100118
  35. SORAFENIB (RAF KINASE INHIBITOR) [Suspect]
     Dosage: 400 MG, QD
     Route: 048
     Dates: start: 20100224, end: 20100323
  36. OXALIPLATIN [Suspect]
     Dosage: 150 TOTAL DOSE
     Route: 042
     Dates: start: 20100209, end: 20100209
  37. CANDESARTAN CILEXETIL [Concomitant]
     Indication: HYPERTENSION
     Dosage: 850 MG, QD
  38. CANDESARTAN CILEXETIL [Concomitant]
     Dosage: 100 MG/300 MG

REACTIONS (7)
  - DYSAESTHESIA [None]
  - HYPERGLYCAEMIA [None]
  - CEREBRAL ISCHAEMIA [None]
  - MYOCARDIAL ISCHAEMIA [None]
  - DIARRHOEA [None]
  - DECREASED APPETITE [None]
  - HYPERTENSION [None]
